FAERS Safety Report 10290171 (Version 1)
Quarter: 2014Q3

REPORT INFORMATION
  Report Type: Spontaneous
  Country: US (occurrence: None)
  Receive Date: 20140707
  Receipt Date: 20140707
  Transmission Date: 20150326
  Serious: Yes (Other)
  Sender: FDA-Public Use
  Company Number: None

PATIENT
  Age: 25 Year
  Sex: Female

DRUGS (1)
  1. REGLAN [Suspect]
     Active Substance: METOCLOPRAMIDE HYDROCHLORIDE
     Indication: LACTATION DISORDER
     Route: 048

REACTIONS (6)
  - Quality of life decreased [None]
  - Sleep disorder [None]
  - Anxiety [None]
  - Thinking abnormal [None]
  - Drug ineffective [None]
  - Depression [None]

NARRATIVE: CASE EVENT DATE: 20120701
